FAERS Safety Report 25859079 (Version 2)
Quarter: 2025Q4

REPORT INFORMATION
  Report Type: Spontaneous
  Country: US (occurrence: US)
  Receive Date: 20250929
  Receipt Date: 20251006
  Transmission Date: 20260117
  Serious: Yes (Other)
  Sender: ELI LILLY AND COMPANY
  Company Number: US-ELI_LILLY_AND_COMPANY-US202509019116

PATIENT
  Sex: Female

DRUGS (2)
  1. KISUNLA [Suspect]
     Active Substance: DONANEMAB-AZBT
     Indication: Product used for unknown indication
     Dosage: UNK UNK, UNKNOWN (1ST FIVE INFUSION)
     Route: 065
  2. KISUNLA [Suspect]
     Active Substance: DONANEMAB-AZBT
     Dosage: 1400 MG, UNKNOWN (6TH INFUSION)
     Route: 065
     Dates: start: 20250916

REACTIONS (3)
  - Loss of consciousness [Not Recovered/Not Resolved]
  - Diarrhoea [Not Recovered/Not Resolved]
  - Infusion related hypersensitivity reaction [Not Recovered/Not Resolved]

NARRATIVE: CASE EVENT DATE: 20250916
